FAERS Safety Report 8790734 (Version 1)
Quarter: 2012Q4

REPORT INFORMATION
  Report Type: Spontaneous
  Country: US (occurrence: None)
  Receive Date: 20120907
  Receipt Date: 20120907
  Transmission Date: 20130627
  Serious: Yes (Hospitalization)
  Sender: FDA-Public Use
  Company Number: TPA2012A06018

PATIENT
  Age: 5 Decade
  Sex: Male

DRUGS (1)
  1. EDARBI [Suspect]
     Indication: HYPERTENSION
     Route: 048

REACTIONS (2)
  - Blood potassium increased [None]
  - Palpitations [None]
